FAERS Safety Report 9401475 (Version 2)
Quarter: 2013Q3

REPORT INFORMATION
  Report Type: Spontaneous
  Country: US (occurrence: US)
  Receive Date: 20130716
  Receipt Date: 20130826
  Transmission Date: 20140515
  Serious: Yes (Other)
  Sender: FDA-Public Use
  Company Number: US-AMGEN-USASP2013047994

PATIENT
  Age: 52 Year
  Sex: Female

DRUGS (1)
  1. ENBREL [Suspect]
     Indication: RHEUMATOID ARTHRITIS
     Dosage: 40 MG, QWK
     Route: 065
     Dates: start: 201305

REACTIONS (14)
  - Diabetes mellitus [Not Recovered/Not Resolved]
  - Contusion [Not Recovered/Not Resolved]
  - Hypoaesthesia [Not Recovered/Not Resolved]
  - Arthralgia [Not Recovered/Not Resolved]
  - Joint swelling [Not Recovered/Not Resolved]
  - Weight decreased [Not Recovered/Not Resolved]
  - Red blood cell sedimentation rate increased [Unknown]
  - C-reactive protein increased [Unknown]
  - Hepatic function abnormal [Unknown]
  - Body temperature increased [Not Recovered/Not Resolved]
  - Dizziness [Not Recovered/Not Resolved]
  - Paraesthesia [Not Recovered/Not Resolved]
  - Injection site pain [Not Recovered/Not Resolved]
  - Injection site urticaria [Not Recovered/Not Resolved]
